FAERS Safety Report 4747516-6 (Version None)
Quarter: 2005Q3

REPORT INFORMATION
  Report Type: 
  Country: None (occurrence: None)
  Receive Date: 20050816
  Receipt Date: 20050802
  Transmission Date: 20060218
  Serious: Yes (Hospitalization)
  Sender: FDA-Public Use
  Company Number: 2005BI011048

PATIENT
  Age: 61 Year
  Sex: Female

DRUGS (25)
  1. AVONEX [Suspect]
     Indication: MULTIPLE SCLEROSIS
     Dosage: IM
     Route: 030
     Dates: start: 20010601
  2. AVONEX [Suspect]
     Indication: MULTIPLE SCLEROSIS
     Dosage: IM
     Route: 030
  3. MS CONTIN [Concomitant]
  4. XANAX [Concomitant]
  5. AMBIEN [Concomitant]
  6. NYSTATIN [Concomitant]
  7. LORTAB [Concomitant]
  8. OXYGEN [Concomitant]
  9. SINEMET CR [Concomitant]
  10. FIORICET [Concomitant]
  11. FLAGYL [Concomitant]
  12. ACIPHEX [Concomitant]
  13. MIRAPEX [Concomitant]
  14. PROVIGIL [Concomitant]
  15. COLACE-T [Concomitant]
  16. LASIX [Concomitant]
  17. PROVENTIL-HFA [Concomitant]
  18. ROBITUSSIN A-C [Concomitant]
  19. PROZAC [Concomitant]
  20. POTASSIUM CHLORIDE [Concomitant]
  21. REQUIP [Concomitant]
  22. FLOVENT [Concomitant]
  23. ELDEPRYL [Concomitant]
  24. ESTRADERM [Concomitant]
  25. BARIUM TABLET [Concomitant]

REACTIONS (4)
  - DYSPHAGIA [None]
  - MULTIPLE SCLEROSIS [None]
  - PARKINSON'S DISEASE [None]
  - PNEUMONIA [None]
